FAERS Safety Report 20644310 (Version 1)
Quarter: 2022Q1

REPORT INFORMATION
  Report Type: Report from Study
  Country: US (occurrence: US)
  Receive Date: 20220328
  Receipt Date: 20220328
  Transmission Date: 20220423
  Serious: Yes (Hospitalization, Other)
  Sender: FDA-Public Use
  Company Number: US-JNJFOC-20220341497

PATIENT
  Age: 43 Year
  Sex: Male

DRUGS (3)
  1. SPRAVATO [Suspect]
     Active Substance: ESKETAMINE
     Indication: Depression
     Dosage: 56 MG,1 TOTAL DOSE
     Dates: start: 20220110, end: 20220110
  2. SPRAVATO [Suspect]
     Active Substance: ESKETAMINE
     Dosage: 84 MG, TOTAL 9 DOSES.
     Dates: start: 20220118, end: 20220307
  3. SPRAVATO [Suspect]
     Active Substance: ESKETAMINE
     Dosage: 1 TOTAL DOSE
     Dates: start: 20220317, end: 20220317

REACTIONS (6)
  - Pulse abnormal [Unknown]
  - Pallor [Unknown]
  - Asthenia [Unknown]
  - Hyperhidrosis [Unknown]
  - Sedation [Unknown]
  - Dissociation [Unknown]

NARRATIVE: CASE EVENT DATE: 20220317
